FAERS Safety Report 11463039 (Version 1)
Quarter: 2015Q3

REPORT INFORMATION
  Report Type: Spontaneous
  Country: IT (occurrence: IT)
  Receive Date: 20150905
  Receipt Date: 20150905
  Transmission Date: 20151125
  Serious: Yes (Hospitalization)
  Sender: FDA-Public Use
  Company Number: IT-009507513-1508ITA013327

PATIENT
  Age: 69 Year
  Sex: Female
  Weight: 64 kg

DRUGS (17)
  1. TORSEMIDE. [Concomitant]
     Active Substance: TORSEMIDE
     Route: 048
  2. CHOLESTYRAMINE RESIN [Concomitant]
     Active Substance: CHOLESTYRAMINE
     Route: 048
  3. REBETOL [Suspect]
     Active Substance: RIBAVIRIN
     Indication: CHRONIC HEPATITIS C
     Dosage: 1000 MG DAILY
     Route: 048
     Dates: start: 20150514, end: 20150528
  4. LANSOPRAZOLE. [Concomitant]
     Active Substance: LANSOPRAZOLE
     Route: 030
  5. FLUOXETINE HYDROCHLORIDE. [Concomitant]
     Active Substance: FLUOXETINE HYDROCHLORIDE
     Route: 048
  6. PALEXIA [Concomitant]
     Active Substance: TAPENTADOL HYDROCHLORIDE
  7. PANCRELIPASE. [Concomitant]
     Active Substance: PANCRELIPASE
  8. CETRIZIN (CEFATRIZINE) [Concomitant]
     Route: 048
  9. VIEKIRAX [Suspect]
     Active Substance: OMBITASVIR\PARITAPREVIR\RITONAVIR
     Indication: CHRONIC HEPATITIS C
     Dosage: 2 DOSE UNIT, DAILY
     Route: 048
     Dates: start: 20150514, end: 20150528
  10. RIFAXIMIN [Concomitant]
     Active Substance: RIFAXIMIN
     Route: 048
  11. CANRENOATE POTASSIUM [Concomitant]
     Active Substance: CANRENOATE POTASSIUM
  12. PROPRANOLOL HYDROCHLORIDE. [Concomitant]
     Active Substance: PROPRANOLOL HYDROCHLORIDE
     Route: 048
  13. TRAMADOL HYDROCHLORIDE. [Concomitant]
     Active Substance: TRAMADOL HYDROCHLORIDE
     Route: 048
  14. EXVIERA [Suspect]
     Active Substance: DASABUVIR
     Indication: CHRONIC HEPATITIS C
     Dosage: TOTALY DAILY DOSE: 500 MG
     Route: 048
     Dates: start: 20150514, end: 20150528
  15. LACTITOL [Concomitant]
     Active Substance: LACTITOL
  16. GABAPENTIN. [Concomitant]
     Active Substance: GABAPENTIN
     Route: 048
  17. CLEXANE (ENOXAPARIN SODIUM) [Suspect]
     Active Substance: ENOXAPARIN SODIUM
     Dosage: STRENGTH: 6000 IU AXA/0.6 ML
     Route: 058

REACTIONS (2)
  - Urinary tract infection [Recovered/Resolved]
  - Blood bilirubin increased [Recovered/Resolved]

NARRATIVE: CASE EVENT DATE: 20150521
